FAERS Safety Report 10226648 (Version 2)
Quarter: 2014Q3

REPORT INFORMATION
  Report Type: Report from Study
  Country: BR (occurrence: BR)
  Receive Date: 20140609
  Receipt Date: 20140717
  Transmission Date: 20150326
  Serious: Yes (Hospitalization, Other)
  Sender: FDA-Public Use
  Company Number: PHHY2014BR070122

PATIENT
  Age: 64 Year
  Sex: Male

DRUGS (16)
  1. TACROLIMUS. [Suspect]
     Active Substance: TACROLIMUS
     Dosage: 1 MONTH OF TRANSPLANT
  2. MYCOPHENOLATE MOFETIL. [Suspect]
     Active Substance: MYCOPHENOLATE MOFETIL
     Dosage: 1.5 G/DAY
  3. TACROLIMUS. [Suspect]
     Active Substance: TACROLIMUS
     Indication: IMMUNOSUPPRESSION
     Dosage: 10 MG, UNK
  4. PREDNISONE. [Suspect]
     Active Substance: PREDNISONE
     Dosage: 2.5 MG, 2YEARS 5 MONTH OF TRANSPLANT
  5. MYCOPHENOLATE MOFETIL. [Suspect]
     Active Substance: MYCOPHENOLATE MOFETIL
     Indication: IMMUNOSUPPRESSION
     Dosage: 2 G, UNK
  6. SPIRONOLACTONE. [Concomitant]
     Active Substance: SPIRONOLACTONE
     Dosage: 37.5 MG/DAY
  7. TACROLIMUS. [Suspect]
     Active Substance: TACROLIMUS
     Dosage: 0.5 MG,
  8. MYCOPHENOLATE MOFETIL. [Suspect]
     Active Substance: MYCOPHENOLATE MOFETIL
     Dosage: 12 MONTH
  9. TACROLIMUS. [Suspect]
     Active Substance: TACROLIMUS
     Dosage: ON 6 MONTH
  10. TACROLIMUS. [Suspect]
     Active Substance: TACROLIMUS
     Dosage: 12 MONTH
  11. PREDNISONE. [Suspect]
     Active Substance: PREDNISONE
     Dosage: 5 MG, 1 TO 5 MONTH
  12. MYCOPHENOLATE MOFETIL. [Suspect]
     Active Substance: MYCOPHENOLATE MOFETIL
     Dosage: 2 G, 1 TO 5 MONTH
  13. BASILIXIMAB [Suspect]
     Active Substance: BASILIXIMAB
     Indication: IMMUNOSUPPRESSION
     Dosage: UNK UKN, UNK
  14. TACROLIMUS. [Suspect]
     Active Substance: TACROLIMUS
     Dosage: 0.5 MG, 1 TO 5 MONTH
  15. PREDNISONE. [Suspect]
     Active Substance: PREDNISONE
     Indication: IMMUNOSUPPRESSION
     Dosage: 20 MG, UNK
  16. MYCOPHENOLATE MOFETIL. [Suspect]
     Active Substance: MYCOPHENOLATE MOFETIL
     Dosage: ON 6 MONTH

REACTIONS (14)
  - Cholestasis [Unknown]
  - Venous occlusion [Unknown]
  - Hepatomegaly [Unknown]
  - Hepatic pain [Unknown]
  - Collateral circulation [Unknown]
  - Arteriovenous fistula site infection [Unknown]
  - Hepatic necrosis [Unknown]
  - Portal hypertensive gastropathy [Unknown]
  - Hepatic haemorrhage [Unknown]
  - Varices oesophageal [Unknown]
  - Hepatic atrophy [Unknown]
  - Oedema [Unknown]
  - Venoocclusive liver disease [Unknown]
  - Ascites [Unknown]
